FAERS Safety Report 8088196 (Version 7)
Quarter: 2013Q2

REPORT INFORMATION
  Report Type: Spontaneous
  Country: US (occurrence: US)
  Receive Date: 20110812
  Receipt Date: 20130524
  Transmission Date: 20140414
  Serious: Yes (Hospitalization, Other)
  Sender: FDA-Public Use
  Company Number: US-ROCHE-795900

PATIENT
  Age: 42 Year
  Sex: Female
  Weight: 45.4 kg

DRUGS (8)
  1. ACCUTANE [Suspect]
     Indication: ACNE
     Route: 065
  2. ACCUTANE [Suspect]
     Route: 065
     Dates: start: 19960601, end: 19980501
  3. ACCUTANE [Suspect]
     Route: 048
     Dates: start: 199805, end: 19990914
  4. PENTASA [Concomitant]
     Route: 065
  5. PREDNISONE [Concomitant]
     Route: 065
  6. IMURAN [Concomitant]
     Route: 065
  7. SYNTHROID [Concomitant]
     Route: 065
  8. PAXIL [Concomitant]
     Route: 065

REACTIONS (13)
  - Colitis ulcerative [Unknown]
  - Inflammatory bowel disease [Unknown]
  - Depression [Unknown]
  - Injury [Unknown]
  - Crohn^s disease [Unknown]
  - Polyp [Unknown]
  - Haemorrhoids [Unknown]
  - Urogenital fistula [Unknown]
  - Lip dry [Unknown]
  - Upper respiratory tract infection [Unknown]
  - Arthralgia [Unknown]
  - Anaemia [Unknown]
  - Eczema [Unknown]
